FAERS Safety Report 23626708 (Version 1)
Quarter: 2024Q1

REPORT INFORMATION
  Report Type: Spontaneous
  Country: US (occurrence: None)
  Receive Date: 20240312
  Receipt Date: 20240312
  Transmission Date: 20240409
  Serious: Yes (Other)
  Sender: FDA-Public Use
  Company Number: None

PATIENT
  Age: 35 Year
  Sex: Female
  Weight: 58.5 kg

DRUGS (7)
  1. LAMOTRIGINE [Suspect]
     Active Substance: LAMOTRIGINE
     Indication: Mood swings
     Dosage: OTHER QUANTITY : 2 CAPSULE(S);?FREQUENCY : DAILY;?
     Route: 048
  2. DEVICE [Concomitant]
     Active Substance: DEVICE
  3. LEVOTHYROXINE [Concomitant]
     Active Substance: LEVOTHYROXINE\LEVOTHYROXINE SODIUM
  4. LANTUS [Concomitant]
     Active Substance: INSULIN GLARGINE
  5. HUMALOG [Concomitant]
     Active Substance: INSULIN LISPRO
  6. ADVIL [Concomitant]
     Active Substance: IBUPROFEN
  7. IBUPROFEN [Concomitant]
     Active Substance: IBUPROFEN

REACTIONS (14)
  - Fatigue [None]
  - Arthralgia [None]
  - Headache [None]
  - Burning sensation [None]
  - Pruritus [None]
  - Musculoskeletal stiffness [None]
  - Urticaria [None]
  - Dry mouth [None]
  - Blood glucose decreased [None]
  - Back pain [None]
  - White blood cell count decreased [None]
  - Swelling [None]
  - Withdrawal syndrome [None]
  - Rash pruritic [None]

NARRATIVE: CASE EVENT DATE: 20240128
